FAERS Safety Report 5430572-X (Version None)
Quarter: 2007Q3

REPORT INFORMATION
  Report Type: 
  Country: None (occurrence: None)
  Receive Date: 20070830
  Receipt Date: 20070727
  Transmission Date: 20080115
  Serious: No
  Sender: FDA-Public Use
  Company Number: A0667081A

PATIENT
  Sex: Female

DRUGS (1)
  1. WELLBUTRIN XL [Suspect]
     Indication: DEPRESSION
     Dates: start: 20070701

REACTIONS (1)
  - MYALGIA [None]
